FAERS Safety Report 20297863 (Version 2)
Quarter: 2022Q1

REPORT INFORMATION
  Report Type: Report from Study
  Country: DE (occurrence: DE)
  Receive Date: 20220105
  Receipt Date: 20220307
  Transmission Date: 20220423
  Serious: Yes (Hospitalization)
  Sender: FDA-Public Use
  Company Number: DE-NOVARTISPH-NVSC2021DE301403

PATIENT
  Age: 46 Year
  Sex: Female
  Weight: 88 kg

DRUGS (6)
  1. FINGOLIMOD [Suspect]
     Active Substance: FINGOLIMOD
     Indication: Relapsing-remitting multiple sclerosis
     Dosage: 0.5 MG
     Route: 048
     Dates: start: 20200820
  2. FINGOLIMOD [Suspect]
     Active Substance: FINGOLIMOD
     Dosage: 0.5 MG
     Route: 048
     Dates: start: 20211204
  3. LAMOTRIGINE [Concomitant]
     Active Substance: LAMOTRIGINE
     Indication: Generalised tonic-clonic seizure
     Dosage: 100 MG, BID (1 IN 0.5 D)
     Route: 048
     Dates: start: 20210504
  4. CHOLECALCIFEROL [Concomitant]
     Active Substance: CHOLECALCIFEROL
     Indication: Hypovitaminosis
     Dosage: 2000 IU, QW
     Route: 048
     Dates: start: 20200731
  5. PREGABALIN [Concomitant]
     Active Substance: PREGABALIN
     Indication: Sensory disturbance
     Dosage: 1 DOSAGE FORM, QD
     Route: 048
     Dates: start: 202002
  6. HUMINSULIN-R [Concomitant]
     Indication: Type 2 diabetes mellitus
     Dosage: 100 IU (1 AS REQUIRED)
     Route: 058
     Dates: start: 2016

REACTIONS (2)
  - Cholelithiasis [Recovered/Resolved]
  - Cholecystitis acute [Recovered/Resolved]

NARRATIVE: CASE EVENT DATE: 20211204
